FAERS Safety Report 12154223 (Version 2)
Quarter: 2016Q2

REPORT INFORMATION
  Report Type: Spontaneous
  Country: GR (occurrence: GR)
  Receive Date: 20160307
  Receipt Date: 20160405
  Transmission Date: 20160815
  Serious: Yes (Hospitalization, Other)
  Sender: FDA-Public Use
  Company Number: GR-ROCHE-1720863

PATIENT
  Sex: Female

DRUGS (3)
  1. AROMASIN [Interacting]
     Active Substance: EXEMESTANE
     Route: 065
  2. TAMIFLU [Suspect]
     Active Substance: OSELTAMIVIR PHOSPHATE
     Indication: VIRAL INFECTION
     Route: 065
     Dates: start: 201602, end: 201602
  3. AROMASIN [Interacting]
     Active Substance: EXEMESTANE
     Indication: BREAST CANCER
     Route: 065
     Dates: start: 20151101, end: 201602

REACTIONS (5)
  - Jaundice [Recovered/Resolved]
  - Vomiting [Recovered/Resolved]
  - Drug interaction [Unknown]
  - Hepatitis [Unknown]
  - Transaminases increased [Recovered/Resolved]
